FAERS Safety Report 4829068-5 (Version None)
Quarter: 2005Q4

REPORT INFORMATION
  Report Type: 
  Country: None (occurrence: None)
  Receive Date: 20051031
  Receipt Date: 20041217
  Transmission Date: 20060501
  Serious: Yes (Hospitalization)
  Sender: FDA-Public Use
  Company Number: 200419690US

PATIENT
  Age: 50 Year
  Sex: Female

DRUGS (15)
  1. ARAVA [Suspect]
     Indication: RHEUMATOID ARTHRITIS
     Dosage: 20 MG QD PO
     Route: 048
     Dates: end: 20041217
  2. ARAVA [Suspect]
     Indication: RHEUMATOID ARTHRITIS
     Dosage: 20 MG QD PO
     Route: 048
     Dates: start: 20041219
  3. METHOTREXATE [Concomitant]
  4. ADALIMUMAB (HUMIRA USA/) [Concomitant]
  5. BUPROPION HYDROCHLORIDE (WELLBUTRIN - SLOW RELEASE) [Concomitant]
  6. CALCIUM CARBONATE [Concomitant]
  7. CELEBREX [Concomitant]
  8. CELEXA [Concomitant]
  9. HYDROCHLOROTHIAZIDE [Concomitant]
  10. PARACETAMOL, HYDROCODONE BITARTRATE (LORTAB) [Concomitant]
  11. PARACEMATOL, DEXTROPORPOXYPHENE NAPSILATE (DARVOCET-N) [Concomitant]
  12. ACCUPRIL [Concomitant]
  13. ZANTAC [Concomitant]
  14. RISEDRONAE SODIUM (ACTONEL ) [Concomitant]
  15. TRAZODONE HYDROCHLORIDE (DESYREL) [Concomitant]

REACTIONS (7)
  - BLOOD UREA DECREASED [None]
  - HAEMATOCRIT DECREASED [None]
  - HAEMOGLOBIN DECREASED [None]
  - PANCREATITIS [None]
  - PROTEIN TOTAL DECREASED [None]
  - RED BLOOD CELL COUNT DECREASED [None]
  - WHITE BLOOD CELL COUNT DECREASED [None]
